FAERS Safety Report 5468119-4 (Version None)
Quarter: 2007Q3

REPORT INFORMATION
  Report Type: 
  Country: None (occurrence: None)
  Receive Date: 20070926
  Receipt Date: 20070917
  Transmission Date: 20080115
  Serious: Yes (Other)
  Sender: FDA-Public Use
  Company Number: US-JNJFOC-20070903947

PATIENT
  Sex: Male
  Weight: 95.26 kg

DRUGS (7)
  1. DURAGESIC-100 [Suspect]
     Indication: PAIN
     Route: 062
  2. ACTOS [Concomitant]
     Indication: DIABETES MELLITUS
     Route: 048
  3. METFORMIN [Concomitant]
     Indication: DIABETES MELLITUS
     Route: 048
  4. ATENOLOL [Concomitant]
     Route: 048
  5. NEXIUM [Concomitant]
     Indication: OESOPHAGEAL SPASM
     Route: 048
  6. CYMBALTA [Concomitant]
     Indication: DEPRESSION
     Route: 048
  7. DIAZEPAM [Concomitant]
     Indication: ANXIETY
     Route: 048

REACTIONS (5)
  - EXPIRED DRUG ADMINISTERED [None]
  - PNEUMONIA [None]
  - PULMONARY FIBROSIS [None]
  - SCAR [None]
  - WEIGHT DECREASED [None]
